FAERS Safety Report 4654125-6 (Version None)
Quarter: 2005Q2

REPORT INFORMATION
  Report Type: 
  Country: None (occurrence: None)
  Receive Date: 20050504
  Receipt Date: 20050422
  Transmission Date: 20051028
  Serious: Yes (Other)
  Sender: FDA-Public Use
  Company Number: 2005042029

PATIENT
  Age: 29 Year
  Sex: Male

DRUGS (5)
  1. GABAPENTIN [Suspect]
     Indication: MOOD ALTERED
     Dosage: 100 MG (100 MG, 1 IN 1 D), ORAL
     Route: 048
     Dates: start: 20040614, end: 20040812
  2. CLOZAPINE [Suspect]
     Indication: MOOD ALTERED
     Dosage: ORAL
     Route: 048
     Dates: start: 20020501, end: 20040812
  3. RANITIDINE HYDROCHLORIDE [Suspect]
     Indication: HYPERCHLORHYDRIA
     Dosage: 150 MG (150 MG, 1 IN 1 D)
     Dates: start: 20030424, end: 20040812
  4. RISPERDAL [Suspect]
     Indication: SCHIZOPHRENIA
     Dosage: 100 MG (100 MG, 1 IN 1 D), ORAL
     Route: 048
     Dates: start: 20040722, end: 20040812
  5. LAMOTRIGINE [Suspect]
     Indication: MOOD ALTERED
     Dosage: 50 MG (50 MG, 1 IN 1 D), ORAL
     Route: 048
     Dates: start: 20040706, end: 20040812

REACTIONS (1)
  - NEUTROPENIA [None]
